FAERS Safety Report 6399572-X (Version None)
Quarter: 2009Q4

REPORT INFORMATION
  Report Type: 
  Country: None (occurrence: None)
  Receive Date: 20091014
  Receipt Date: 20091005
  Transmission Date: 20100525
  Serious: Yes (Other)
  Sender: FDA-Public Use
  Company Number: US-ASTRAZENECA-2009SE18374

PATIENT
  Age: 53 Year
  Sex: Female
  Weight: 81.6 kg

DRUGS (10)
  1. NEXIUM [Suspect]
     Indication: GASTROOESOPHAGEAL REFLUX DISEASE
     Route: 048
     Dates: start: 20010101
  2. SYMBICORT [Suspect]
     Indication: CHRONIC OBSTRUCTIVE PULMONARY DISEASE
     Dosage: 160/4.5 UG, 4 PUFFS BID
     Route: 055
     Dates: start: 20050101
  3. PRILOSEC OTC [Suspect]
     Route: 048
     Dates: end: 20010101
  4. CRESTOR [Suspect]
     Route: 048
     Dates: start: 20090101, end: 20090101
  5. CRESTOR [Suspect]
     Route: 048
     Dates: start: 20090101, end: 20090101
  6. CRESTOR [Suspect]
     Route: 048
     Dates: start: 20090901
  7. EFFEXOR [Concomitant]
  8. CLIMARA [Concomitant]
     Indication: HORMONE THERAPY
  9. SPIRIVA [Concomitant]
  10. PEPCID [Concomitant]

REACTIONS (7)
  - ARTERIAL OCCLUSIVE DISEASE [None]
  - ARTHRALGIA [None]
  - CHRONIC OBSTRUCTIVE PULMONARY DISEASE [None]
  - DRUG INEFFECTIVE [None]
  - DYSPHONIA [None]
  - NEPHROLITHIASIS [None]
  - PAIN IN EXTREMITY [None]
